FAERS Safety Report 7959307-3 (Version None)
Quarter: 2011Q4

REPORT INFORMATION
  Report Type: 
  Country: None (occurrence: None)
  Receive Date: 20111206
  Receipt Date: 20111201
  Transmission Date: 20120403
  Serious: Yes (Other)
  Sender: FDA-Public Use
  Company Number: US-PFIZER INC-2011294736

PATIENT
  Age: 60 Year
  Sex: Female

DRUGS (2)
  1. BUPIVACAINE HCL [Suspect]
  2. EPINEPHRINE [Suspect]

REACTIONS (1)
  - CHONDROLYSIS [None]
